FAERS Safety Report 7169906-7 (Version None)
Quarter: 2010Q4

REPORT INFORMATION
  Report Type: 
  Country: None (occurrence: None)
  Receive Date: 20101206
  Receipt Date: 20101118
  Transmission Date: 20110411
  Serious: Yes (Life-Threatening, Hospitalization, Other)
  Sender: FDA-Public Use
  Company Number: DSA_44379_2010

PATIENT
  Age: 39 Year
  Sex: Male
  Weight: 100 kg

DRUGS (6)
  1. DILTIAZEM HYDROCHLORIDE [Suspect]
     Indication: HYPERTENSION
     Dosage: (DF PARENTERAL)
     Route: 051
  2. DILTIAZEM HYDROCHLORIDE [Suspect]
     Indication: TACHYCARDIA
     Dosage: (DF PARENTERAL)
     Route: 051
  3. NICARDIPINE HYDROCHLORIDE [Suspect]
     Indication: HYPERTENSION
     Dosage: (DF)
  4. NICARDIPINE HYDROCHLORIDE [Suspect]
     Indication: TACHYCARDIA
     Dosage: (DF)
  5. MIDAZOLAM HCL [Suspect]
     Indication: HYPERTENSION
     Dosage: (DF PARENTERAL)
     Route: 051
  6. MIDAZOLAM HCL [Suspect]
     Indication: TACHYCARDIA
     Dosage: (DF PARENTERAL)
     Route: 051

REACTIONS (4)
  - CARDIAC ARREST [None]
  - DRUG INTERACTION [None]
  - ELECTROCARDIOGRAM P WAVE ABNORMAL [None]
  - POISONING [None]
